FAERS Safety Report 20582695 (Version 1)
Quarter: 2022Q1

REPORT INFORMATION
  Report Type: Spontaneous
  Country: CN (occurrence: CN)
  Receive Date: 20220311
  Receipt Date: 20220311
  Transmission Date: 20220423
  Serious: Yes (Life-Threatening)
  Sender: FDA-Public Use
  Company Number: CN-PARATEK PHARMACEUTICALS, INC.-2022PTK00077

PATIENT
  Age: 78 Year
  Sex: Female

DRUGS (2)
  1. NUZYRA [Suspect]
     Active Substance: OMADACYCLINE
     Indication: Pneumonia
     Dosage: 200 MG, 1X/DAY
     Dates: start: 20220218, end: 20220218
  2. NUZYRA [Suspect]
     Active Substance: OMADACYCLINE
     Dosage: 100 MG, 1X/DAY
     Dates: start: 20220219, end: 20220224

REACTIONS (2)
  - Pseudomonas infection [Unknown]
  - Acinetobacter infection [Unknown]

NARRATIVE: CASE EVENT DATE: 20220201
